FAERS Safety Report 6815019 (Version 4)
Quarter: 2015Q1

REPORT INFORMATION
  Report Type: Spontaneous
  Country: CH (occurrence: CH)
  Receive Date: 20081118
  Receipt Date: 20150205
  Transmission Date: 20150721
  Serious: Yes (Other)
  Sender: FDA-Public Use
  Company Number: PHHY2008CH27689

PATIENT
  Age: 48 Year
  Sex: Male
  Weight: 69.84 kg

DRUGS (4)
  1. ZOMETA [Suspect]
     Active Substance: ZOLEDRONIC ACID
     Indication: METASTATIC RENAL CELL CARCINOMA
     Dosage: 4 MG/5 ML, UNK
     Route: 041
     Dates: start: 20060101
  2. NEXAVAR [Suspect]
     Active Substance: SORAFENIB
     Indication: METASTATIC RENAL CELL CARCINOMA
     Dosage: 400 MG, DAILY
     Route: 048
  3. SUTENT [Suspect]
     Active Substance: SUNITINIB MALATE
     Indication: METASTATIC RENAL CELL CARCINOMA
     Route: 065
  4. INTRON A [Suspect]
     Active Substance: INTERFERON ALFA-2B
     Indication: METASTATIC RENAL CELL CARCINOMA
     Dosage: UNK
     Route: 065

REACTIONS (5)
  - Infection [Not Recovered/Not Resolved]
  - Osteomyelitis [Not Recovered/Not Resolved]
  - Osteonecrosis [Not Recovered/Not Resolved]
  - Impaired healing [Not Recovered/Not Resolved]
  - Condition aggravated [Not Recovered/Not Resolved]

NARRATIVE: CASE EVENT DATE: 20060101
